FAERS Safety Report 12746512 (Version 1)
Quarter: 2016Q3

REPORT INFORMATION
  Report Type: Spontaneous
  Country: US (occurrence: US)
  Receive Date: 20160915
  Receipt Date: 20160915
  Transmission Date: 20161109
  Serious: No
  Sender: FDA-Public Use
  Company Number: None

PATIENT
  Sex: Female

DRUGS (3)
  1. SIMVASTATIN. [Suspect]
     Active Substance: SIMVASTATIN
     Indication: BLOOD CHOLESTEROL INCREASED
     Route: 048
  2. OMEPRAZOLE. [Concomitant]
     Active Substance: OMEPRAZOLE
  3. FLEUTICIASONE SPRAY [Concomitant]

REACTIONS (4)
  - Myalgia [None]
  - Headache [None]
  - Blood cholesterol increased [None]
  - Aphonia [None]

NARRATIVE: CASE EVENT DATE: 20160608
